FAERS Safety Report 6147147-X (Version None)
Quarter: 2009Q2

REPORT INFORMATION
  Report Type: 
  Country: None (occurrence: None)
  Receive Date: 20090406
  Receipt Date: 20090401
  Transmission Date: 20091009
  Serious: Yes (Other)
  Sender: FDA-Public Use
  Company Number: 190116USA

PATIENT
  Sex: Female
  Weight: 94.3482 kg

DRUGS (3)
  1. LEVONORGESTREL [Suspect]
     Indication: POST COITAL CONTRACEPTION
     Dosage: (0.75 MG),ORAL
     Dates: start: 20080101, end: 20080101
  2. LEVONORGESTREL [Suspect]
     Indication: POST COITAL CONTRACEPTION
     Dosage: (0.75 MG),ORAL
     Dates: start: 20080101, end: 20080101
  3. LEVONORGESTREL [Suspect]
     Indication: POST COITAL CONTRACEPTION
     Dosage: (0.75 MG),ORAL
     Dates: start: 20090101, end: 20090101

REACTIONS (5)
  - ABDOMINAL DISTENSION [None]
  - ABORTION SPONTANEOUS [None]
  - DRUG EXPOSURE DURING PREGNANCY [None]
  - METRORRHAGIA [None]
  - PREGNANCY AFTER POST COITAL CONTRACEPTION [None]
